FAERS Safety Report 25852753 (Version 3)
Quarter: 2025Q4

REPORT INFORMATION
  Report Type: Spontaneous
  Country: US (occurrence: US)
  Receive Date: 20250926
  Receipt Date: 20251016
  Transmission Date: 20260118
  Serious: Yes (Hospitalization, Other)
  Sender: DERMARITE INDUSTRIES
  Company Number: US-DERMARITE INDUSTRIES, LLC.-2025-DER-US000031

PATIENT

DRUGS (3)
  1. PERIGUARD [Suspect]
     Active Substance: PETROLATUM
     Indication: Decubitus ulcer
     Dosage: APPLIES 5 DAYS A WEEK AS NEEDED
     Route: 061
     Dates: start: 2020, end: 202509
  2. PERIGUARD [Suspect]
     Active Substance: PETROLATUM
     Dosage: APPLIES 5 DAYS A WEEK AS NEEDED
     Route: 061
     Dates: start: 20250916
  3. ASPIRIN [Concomitant]
     Active Substance: ASPIRIN
     Indication: Product used for unknown indication

REACTIONS (1)
  - Sepsis [Recovered/Resolved]

NARRATIVE: CASE EVENT DATE: 20241101
